FAERS Safety Report 6054998-9 (Version None)
Quarter: 2009Q1

REPORT INFORMATION
  Report Type: 
  Country: None (occurrence: None)
  Receive Date: 20090128
  Receipt Date: 20090115
  Transmission Date: 20090719
  Serious: Yes (Other)
  Sender: FDA-Public Use
  Company Number: FR-SANOFI-SYNTHELABO-A01200807172

PATIENT
  Sex: Male

DRUGS (8)
  1. GINKGO BILOBA EXTRACT [Concomitant]
     Dosage: UNK
  2. DOMPERIDONE MALEATE [Concomitant]
     Dosage: UNK
  3. BUFLOMEDIL [Concomitant]
     Dosage: UNK
  4. TROSPIUM CHLORIDE [Concomitant]
     Dosage: UNK
  5. TELMISARTAN [Concomitant]
     Dosage: UNK
  6. BISOPROLOL FUMARATE [Concomitant]
     Dosage: UNK
  7. PENTOXIFYLLINE [Concomitant]
     Dosage: UNK
  8. LEUPROLIDE ACETATE [Suspect]
     Indication: PROSTATE CANCER
     Dosage: 22.5 MG
     Route: 058
     Dates: start: 20070505, end: 20070505

REACTIONS (2)
  - ESCHAR [None]
  - FALL [None]
